FAERS Safety Report 6547816-3 (Version None)
Quarter: 2010Q1

REPORT INFORMATION
  Report Type: 
  Country: None (occurrence: None)
  Receive Date: 20100124
  Receipt Date: 20091019
  Transmission Date: 20100710
  Serious: No
  Sender: FDA-Public Use
  Company Number: DE-ALEXION-A200900868

PATIENT

DRUGS (1)
  1. SOLIRIS [Suspect]

REACTIONS (2)
  - HAEMOLYSIS [None]
  - UPPER RESPIRATORY TRACT INFECTION [None]
